FAERS Safety Report 4872531-1 (Version None)
Quarter: 2005Q4

REPORT INFORMATION
  Report Type: 
  Country: None (occurrence: None)
  Receive Date: 20051230
  Receipt Date: 20051230
  Transmission Date: 20060501
  Serious: Yes (Other)
  Sender: FDA-Public Use
  Company Number: None

PATIENT
  Age: 35 Year
  Sex: Male
  Weight: 104.3273 kg

DRUGS (1)
  1. PROTONIX [Suspect]
     Indication: BARRETT'S OESOPHAGUS
     Dosage: 1 TABLET DAILY PO
     Route: 048
     Dates: start: 20051205, end: 20051228

REACTIONS (2)
  - BLOOD ALCOHOL INCREASED [None]
  - MEDICATION ERROR [None]
